FAERS Safety Report 10264323 (Version 1)
Quarter: 2014Q2

REPORT INFORMATION
  Report Type: Spontaneous
  Country: US (occurrence: None)
  Receive Date: 20140624
  Receipt Date: 20140624
  Transmission Date: 20141212
  Serious: Yes (Other)
  Sender: FDA-Public Use
  Company Number: None

PATIENT
  Age: 30 Year
  Sex: Male
  Weight: 108.86 kg

DRUGS (1)
  1. BANANA BOAT (AVOBENZONE\HOMOSALATE\OCTISALATE\OCTOCRYLENE) [Suspect]
     Indication: PROPHYLAXIS AGAINST SOLAR RADIATION
     Dates: start: 20140622, end: 20140622

REACTIONS (4)
  - Sunburn [None]
  - Incorrect drug administration duration [None]
  - Drug ineffective [None]
  - Product quality issue [None]
